FAERS Safety Report 8334016-X (Version None)
Quarter: 2012Q2

REPORT INFORMATION
  Report Type: 
  Country: None (occurrence: None)
  Receive Date: 20120503
  Receipt Date: 20120424
  Transmission Date: 20120825
  Serious: Yes (Hospitalization, Other)
  Sender: FDA-Public Use
  Company Number: US-ASTRAZENECA-2010SE14949

PATIENT
  Age: 80 Year
  Sex: Male
  Weight: 75.3 kg

DRUGS (14)
  1. CALCITRIOL [Concomitant]
  2. CITRUCEL [Concomitant]
  3. MULTI-VITAMINS [Concomitant]
  4. SYMBICORT [Suspect]
     Indication: RESPIRATORY TRACT INFECTION FUNGAL
     Dosage: 160/4.5 TWO PUFFS
     Route: 055
     Dates: start: 20090101
  5. LASIX [Concomitant]
  6. SYMBICORT [Suspect]
     Indication: LUNG DISORDER
     Dosage: 160/4.5 TWO PUFFS
     Route: 055
     Dates: start: 20090101
  7. CO Q 10 [Concomitant]
  8. CALCIUM CARBONATE [Concomitant]
  9. SYMBICORT [Suspect]
     Indication: ALVEOLITIS ALLERGIC
     Dosage: 160/4.5 TWO PUFFS
     Route: 055
     Dates: start: 20090101
  10. METOPROLOL TARTRATE [Concomitant]
  11. CLONAZEPAM [Concomitant]
  12. ALLOPURINOL [Concomitant]
  13. CHEMOTHERAPY [Suspect]
     Indication: BLADDER CANCER
     Route: 065
     Dates: start: 20081201, end: 20090901
  14. METOLAZONE [Concomitant]

REACTIONS (15)
  - PNEUMONIA [None]
  - NASOPHARYNGITIS [None]
  - ASTHENIA [None]
  - SINGLE FUNCTIONAL KIDNEY [None]
  - PLEURAL EFFUSION [None]
  - COUGH [None]
  - BODY HEIGHT DECREASED [None]
  - WEIGHT DECREASED [None]
  - OXYGEN SATURATION DECREASED [None]
  - NEPHROLITHIASIS [None]
  - BLOOD CALCIUM INCREASED [None]
  - DEAFNESS [None]
  - METASTATIC CARCINOMA OF THE BLADDER [None]
  - BRONCHITIS [None]
  - FEELING ABNORMAL [None]
